FAERS Safety Report 12808396 (Version 2)
Quarter: 2016Q4

REPORT INFORMATION
  Report Type: Spontaneous
  Country: BE (occurrence: BE)
  Receive Date: 20161004
  Receipt Date: 20161027
  Transmission Date: 20170207
  Serious: Yes (Other)
  Sender: FDA-Public Use
  Company Number: BE-GILEAD-2016-0226557

PATIENT
  Age: 61 Year
  Sex: Male

DRUGS (10)
  1. DAKLINZA [Concomitant]
     Active Substance: DACLATASVIR
     Dosage: UNK
  2. AMLODIPINE [Concomitant]
     Active Substance: AMLODIPINE BESYLATE
     Dosage: 10 MG, QD
  3. NATRIUMBIKARBONAT [Concomitant]
     Dosage: 1 G, BID
  4. ASAFLOW [Concomitant]
     Active Substance: ASPIRIN
     Dosage: 80 MG, QD
  5. SOFOSBUVIR [Suspect]
     Active Substance: SOFOSBUVIR
     Indication: PRODUCT USED FOR UNKNOWN INDICATION
     Dosage: 1 DF, QD
     Route: 065
     Dates: start: 20160812, end: 201609
  6. NOBITEN                            /01339101/ [Concomitant]
     Active Substance: NEBIVOLOL
     Dosage: 5 MG, QD
  7. PHOSLO [Concomitant]
     Active Substance: CALCIUM ACETATE
     Dosage: 667 MG, TID
  8. SOFOSBUVIR [Suspect]
     Active Substance: SOFOSBUVIR
     Dosage: 1 DF, QOD
     Route: 065
     Dates: start: 201609
  9. FENISTIL [Concomitant]
     Active Substance: DIMETHINDENE
     Indication: PRURITUS
     Dosage: 1 MG, QD
  10. REMERGON [Concomitant]
     Active Substance: MIRTAZAPINE
     Dosage: 30 MG, QD

REACTIONS (2)
  - Renal failure [Not Recovered/Not Resolved]
  - Off label use [Not Recovered/Not Resolved]

NARRATIVE: CASE EVENT DATE: 20160812
